FAERS Safety Report 4551240-2 (Version None)
Quarter: 2005Q1

REPORT INFORMATION
  Report Type: 
  Country: None (occurrence: None)
  Receive Date: 20050110
  Receipt Date: 20041229
  Transmission Date: 20050727
  Serious: Yes (Life-Threatening)
  Sender: FDA-Public Use
  Company Number: 2003AP04562

PATIENT
  Age: 51 Year
  Sex: Male

DRUGS (6)
  1. IRESSA [Suspect]
     Indication: NON-SMALL CELL LUNG CANCER
     Dosage: 250 MG DAILY PO
     Route: 048
     Dates: start: 20031126, end: 20031216
  2. ALLOPURINOL [Concomitant]
  3. HALCION [Concomitant]
  4. CISPLATIN [Concomitant]
  5. IRINOTECAN [Concomitant]
  6. PACLITAXEL [Concomitant]

REACTIONS (10)
  - ANOREXIA [None]
  - BLOOD PRESSURE DIASTOLIC DECREASED [None]
  - HEADACHE [None]
  - LUNG DISORDER [None]
  - METASTASES TO LIVER [None]
  - PO2 DECREASED [None]
  - PYREXIA [None]
  - RENAL FAILURE ACUTE [None]
  - SHOCK [None]
  - VOMITING [None]
